FAERS Safety Report 7052143-4 (Version None)
Quarter: 2010Q4

REPORT INFORMATION
  Report Type: 
  Country: None (occurrence: None)
  Receive Date: 20101019
  Receipt Date: 20101012
  Transmission Date: 20110411
  Serious: Yes (Hospitalization)
  Sender: FDA-Public Use
  Company Number: PHHO2010US15632

PATIENT
  Sex: Female
  Weight: 62.132 kg

DRUGS (7)
  1. AFINITOR [Suspect]
     Indication: BREAST CANCER METASTATIC
     Dosage: 5 MG, QD
     Route: 048
     Dates: start: 20100922
  2. OMEPRAZOLE [Concomitant]
  3. MORPHINE SULFATE [Concomitant]
  4. OXYGEN [Concomitant]
  5. MS CONTIN [Concomitant]
  6. ALPRAZOLAM [Concomitant]
  7. HYDROMORPHONE HYDROCHLORIDE [Concomitant]

REACTIONS (1)
  - PAIN [None]
